FAERS Safety Report 10240890 (Version 1)
Quarter: 2014Q2

REPORT INFORMATION
  Report Type: Spontaneous
  Country: GB (occurrence: None)
  Receive Date: 20140613
  Receipt Date: 20140613
  Transmission Date: 20141212
  Serious: Yes (Other)
  Sender: FDA-Public Use
  Company Number: SYM-2014-21877

PATIENT
  Age: 58 Year
  Sex: Female

DRUGS (5)
  1. FLUOROURACIL (FLUOROURACIL) [Suspect]
     Indication: BREAST CANCER
  2. DEXAMETHASONE (DEXAMETHASONE) [Suspect]
     Indication: ANTIEMETIC SUPPORTIVE CARE
  3. CYCLOPHOSPHAMIDE (CYCLOPHOSPHAMIDE) [Suspect]
     Indication: BREAST CANCER
  4. DOMPERIDONE (DOMPERIDONE) [Suspect]
     Indication: ANTIEMETIC SUPPORTIVE CARE
     Dosage: 30MG, 3 IN 1D, ORAL
     Route: 048
  5. EPIRUBICIN [Suspect]
     Indication: BREAST CANCER

REACTIONS (3)
  - Urinary retention [None]
  - Peripheral swelling [None]
  - Local swelling [None]
